FAERS Safety Report 9347996 (Version 1)
Quarter: 2013Q2

REPORT INFORMATION
  Report Type: Spontaneous
  Country: CN (occurrence: CN)
  Receive Date: 20130614
  Receipt Date: 20130614
  Transmission Date: 20140414
  Serious: Yes (Life-Threatening)
  Sender: FDA-Public Use
  Company Number: CN-JNJFOC-20130602710

PATIENT
  Age: 27 Year
  Sex: Female
  Weight: 64 kg

DRUGS (3)
  1. TYLENOL COLD [Suspect]
     Indication: NASOPHARYNGITIS
     Route: 048
     Dates: start: 20120216, end: 20120216
  2. VITAMIN C [Suspect]
     Indication: PRODUCT USED FOR UNKNOWN INDICATION
     Dosage: REPORTED TRADE NAME:VITAMIN C INJECTION
     Route: 041
     Dates: start: 20120216, end: 20120216
  3. GLUCOSE [Suspect]
     Indication: PRODUCT USED FOR UNKNOWN INDICATION
     Dosage: REPORTED TRADE NAME: GLUCOSE INJECTION.
     Route: 041
     Dates: start: 20120216, end: 20120216

REACTIONS (2)
  - Anaphylactic shock [Recovered/Resolved]
  - Exposure during pregnancy [Unknown]
